FAERS Safety Report 11321236 (Version 1)
Quarter: 2015Q3

REPORT INFORMATION
  Report Type: Spontaneous
  Country: DE (occurrence: SE)
  Receive Date: 20150729
  Receipt Date: 20150729
  Transmission Date: 20151125
  Serious: Yes (Death)
  Sender: FDA-Public Use
  Company Number: SE-HOSPIRA-2819756

PATIENT
  Age: 32 Year
  Sex: Male

DRUGS (2)
  1. PAXENE /00790702/ [Suspect]
     Active Substance: PACLITAXEL
     Indication: PRODUCT USED FOR UNKNOWN INDICATION
     Dosage: 6 MG/ML
     Dates: start: 200703, end: 200712
  2. AVASTIN [Suspect]
     Active Substance: BEVACIZUMAB
     Indication: BREAST CANCER
     Dates: start: 200703, end: 200712

REACTIONS (4)
  - Skin tightness [Fatal]
  - Skin induration [Fatal]
  - Infection [Fatal]
  - Movement disorder [Fatal]
